FAERS Safety Report 21791440 (Version 1)
Quarter: 2022Q4

REPORT INFORMATION
  Report Type: Spontaneous
  Country: US (occurrence: US)
  Receive Date: 20221228
  Receipt Date: 20221228
  Transmission Date: 20230113
  Serious: No
  Sender: FDA-Public Use
  Company Number: US-BEH-2022153426

PATIENT
  Age: 57 Year
  Sex: Male

DRUGS (1)
  1. ZEMAIRA [Suspect]
     Active Substance: .ALPHA.1-PROTEINASE INHIBITOR HUMAN
     Indication: Alpha-1 antitrypsin deficiency
     Dosage: 5874 MILLIGRAM, QW
     Route: 042
     Dates: start: 20221203

REACTIONS (4)
  - Dizziness [Unknown]
  - Muscle spasms [Unknown]
  - Increased appetite [Unknown]
  - Thirst [Unknown]

NARRATIVE: CASE EVENT DATE: 20221201
